FAERS Safety Report 17125640 (Version 2)
Quarter: 2025Q3

REPORT INFORMATION
  Report Type: Report from Study
  Country: US (occurrence: US)
  Receive Date: 20191208
  Receipt Date: 20250718
  Transmission Date: 20251021
  Serious: Yes (Life-Threatening, Other)
  Sender: NOVARTIS
  Company Number: US-NOVARTISPH-NVSC2019US059313

PATIENT
  Age: 78 Year
  Sex: Female
  Weight: 55 kg

DRUGS (1)
  1. KYMRIAH [Suspect]
     Active Substance: TISAGENLECLEUCEL
     Indication: Diffuse large B-cell lymphoma
     Route: 042
     Dates: start: 20190919

REACTIONS (9)
  - Encephalopathy [Unknown]
  - Depressed level of consciousness [Unknown]
  - Somnolence [Unknown]
  - Disorientation [Unknown]
  - Confusional state [Unknown]
  - Cytokine release syndrome [Unknown]
  - Pyrexia [Unknown]
  - Dysphagia [Unknown]
  - Out of specification test results [Unknown]

NARRATIVE: CASE EVENT DATE: 20190919
